FAERS Safety Report 7076128-7 (Version None)
Quarter: 2010Q4

REPORT INFORMATION
  Report Type: 
  Country: None (occurrence: None)
  Receive Date: 20101021
  Receipt Date: 20101006
  Transmission Date: 20110411
  Serious: Yes (Hospitalization)
  Sender: FDA-Public Use
  Company Number: 2010MA003375

PATIENT
  Age: 6 Day
  Sex: Male
  Weight: 6 kg

DRUGS (1)
  1. METOCLOPRAMIDE TABLETS USP, 10 MG (PUREPAC) (METOCLOPRAMIDE) [Suspect]
     Indication: VOMITING
     Dosage: 3 GTT

REACTIONS (8)
  - DRUG TOXICITY [None]
  - FEEDING DISORDER NEONATAL [None]
  - HYPERTONIA [None]
  - HYPOTONIA [None]
  - METHAEMOGLOBINAEMIA [None]
  - NEONATAL RESPIRATORY DISTRESS SYNDROME [None]
  - OVERDOSE [None]
  - SHOCK [None]
